FAERS Safety Report 11319464 (Version 6)
Quarter: 2017Q2

REPORT INFORMATION
  Report Type: Report from Study
  Country: IT (occurrence: IT)
  Receive Date: 20150729
  Receipt Date: 20170531
  Transmission Date: 20170829
  Serious: Yes (Death, Life-Threatening, Other)
  Sender: FDA-Public Use
  Company Number: IT-AMGEN-ITANI2015075764

PATIENT
  Age: 71 Year
  Sex: Male
  Weight: 79 kg

DRUGS (16)
  1. AMIODARONE HYDROCHLORIDE. [Concomitant]
     Active Substance: AMIODARONE HYDROCHLORIDE
     Indication: VENTRICULAR TACHYCARDIA
     Dosage: 200 MG, DAILY
     Route: 048
     Dates: start: 201504
  2. BISOPROLOL [Concomitant]
     Active Substance: BISOPROLOL
     Indication: CARDIAC FAILURE
  3. FUROSEMIDE. [Concomitant]
     Active Substance: FUROSEMIDE
     Indication: CARDIAC FAILURE
     Dosage: 37.5 MG, QD
     Route: 048
     Dates: start: 201504
  4. RAMIPRIL. [Concomitant]
     Active Substance: RAMIPRIL
     Indication: CARDIAC FAILURE
     Dosage: 2.5 MG, QD
     Route: 048
     Dates: start: 201504
  5. ACETYLSALICYLIC ACID [Concomitant]
     Active Substance: ASPIRIN
     Indication: CORONARY ARTERY DISEASE
     Dosage: 100 MG, QD
     Route: 048
  6. IVABRADINE [Suspect]
     Active Substance: IVABRADINE
     Indication: CARDIAC FAILURE CHRONIC
     Dosage: 5 MG, QD
     Route: 048
     Dates: start: 20150629
  7. CLOPIDOGREL [Concomitant]
     Active Substance: CLOPIDOGREL BISULFATE
     Indication: CORONARY ARTERY DISEASE
     Dosage: 75 MG, QD
     Route: 048
     Dates: start: 201505
  8. BISOPROLOL [Concomitant]
     Active Substance: BISOPROLOL
     Indication: CORONARY ARTERY DISEASE
     Dosage: 1.25 MG, QD
     Route: 048
     Dates: start: 201504
  9. SPIRONOLACTONE. [Concomitant]
     Active Substance: SPIRONOLACTONE
     Indication: CARDIAC FAILURE
     Dosage: 7 MG, QD
     Route: 048
     Dates: start: 201504
  10. ISOSORBIDE MONONITRATE. [Concomitant]
     Active Substance: ISOSORBIDE MONONITRATE
     Indication: CORONARY ARTERY DISEASE
     Dosage: 60 MG, QD
     Route: 048
     Dates: start: 201504
  11. LANSOPRAZOLE. [Concomitant]
     Active Substance: LANSOPRAZOLE
     Indication: PROPHYLAXIS
     Dosage: 30 MG, QD
     Route: 048
     Dates: start: 201504
  12. ACETYLSALICYLIC ACID [Concomitant]
     Active Substance: ASPIRIN
     Indication: CEREBROVASCULAR ACCIDENT
  13. MEXILETINE [Concomitant]
     Active Substance: MEXILETINE
     Indication: VENTRICULAR TACHYCARDIA
     Dosage: 600 MG, QD
     Route: 048
     Dates: start: 201505
  14. ATORVASTATIN [Concomitant]
     Active Substance: ATORVASTATIN
     Indication: HYPERCHOLESTEROLAEMIA
     Dosage: 20 MG, QD
     Route: 048
     Dates: start: 201504
  15. ATORVASTATIN [Concomitant]
     Active Substance: ATORVASTATIN
     Indication: CORONARY ARTERY DISEASE
  16. METFORMIN [Concomitant]
     Active Substance: METFORMIN HYDROCHLORIDE
     Indication: TYPE 2 DIABETES MELLITUS
     Dosage: 500 MG, QD
     Route: 048
     Dates: start: 201505

REACTIONS (10)
  - Blood glucose increased [Not Recovered/Not Resolved]
  - Blood creatinine increased [Not Recovered/Not Resolved]
  - Anaemia [Not Recovered/Not Resolved]
  - Hyponatraemic syndrome [Not Recovered/Not Resolved]
  - Blood urea increased [Not Recovered/Not Resolved]
  - Pupils unequal [Not Recovered/Not Resolved]
  - Troponin I increased [Not Recovered/Not Resolved]
  - Product use issue [Unknown]
  - Cardiac arrest [Recovered/Resolved]
  - Ventricular fibrillation [Fatal]

NARRATIVE: CASE EVENT DATE: 20150629
